FAERS Safety Report 15435899 (Version 1)
Quarter: 2018Q3

REPORT INFORMATION
  Report Type: Spontaneous
  Country: BR (occurrence: BR)
  Receive Date: 20180927
  Receipt Date: 20180927
  Transmission Date: 20181010
  Serious: Yes (Hospitalization, Other)
  Sender: FDA-Public Use
  Company Number: PHHY2018BR108671

PATIENT
  Sex: Female
  Weight: 74 kg

DRUGS (3)
  1. CHLORTALIDONE [Suspect]
     Active Substance: CHLORTHALIDONE
     Indication: BLOOD PRESSURE INADEQUATELY CONTROLLED
     Route: 065
  2. HIGROTON [Suspect]
     Active Substance: CHLORTHALIDONE
     Indication: BLOOD PRESSURE INADEQUATELY CONTROLLED
     Dosage: 1 DF, QD
     Route: 048
  3. MICARDIS [Concomitant]
     Active Substance: TELMISARTAN
     Indication: PRODUCT USED FOR UNKNOWN INDICATION
     Route: 065

REACTIONS (3)
  - Drug ineffective [Not Recovered/Not Resolved]
  - Chronic kidney disease [Not Recovered/Not Resolved]
  - Blood pressure increased [Not Recovered/Not Resolved]
